FAERS Safety Report 25982309 (Version 1)
Quarter: 2025Q4

REPORT INFORMATION
  Report Type: Spontaneous
  Country: US (occurrence: US)
  Receive Date: 20251031
  Receipt Date: 20251031
  Transmission Date: 20260118
  Serious: No
  Sender: CHATTEM
  Company Number: US-OPELLA-2025OHG031407

PATIENT
  Age: 73 Year
  Sex: Female

DRUGS (3)
  1. ALLEGRA ALLERGY 24 HOUR [Suspect]
     Active Substance: FEXOFENADINE HYDROCHLORIDE
     Indication: Rhinorrhoea
     Route: 065
  2. ALLEGRA ALLERGY 24 HOUR [Suspect]
     Active Substance: FEXOFENADINE HYDROCHLORIDE
     Indication: Lacrimation increased
  3. TRAMADOL [Concomitant]
     Active Substance: TRAMADOL
     Indication: Product used for unknown indication
     Route: 065

REACTIONS (2)
  - Wrong dose [Unknown]
  - No adverse event [Unknown]

NARRATIVE: CASE EVENT DATE: 20251028
